FAERS Safety Report 12853413 (Version 1)
Quarter: 2016Q4

REPORT INFORMATION
  Report Type: Spontaneous
  Country: US (occurrence: US)
  Receive Date: 20161017
  Receipt Date: 20161017
  Transmission Date: 20170207
  Serious: Yes (Other)
  Sender: FDA-Public Use
  Company Number: US-ACCORD-044879

PATIENT
  Age: 85 Year
  Sex: Female

DRUGS (4)
  1. FLUOROURACIL. [Suspect]
     Active Substance: FLUOROURACIL
     Indication: PRODUCT USED FOR UNKNOWN INDICATION
     Dosage: 50 MG/ML 5-FLUOROURACIL SOLUTION ?ALSO RECEIVED INTRACAMERAL INJECTION (400 MCG IN 0.1 ML)
  2. PREDNISOLONE. [Concomitant]
     Active Substance: PREDNISOLONE
     Indication: HYPOPYON
     Dosage: ALSO RECEIVED PREDNISOLONE ACETATE 01 HOURLY
     Route: 061
  3. AMIKACIN [Concomitant]
     Active Substance: AMIKACIN
     Indication: INFECTION
     Dosage: INTRAVITREAL
  4. VANCOMYCIN [Concomitant]
     Active Substance: VANCOMYCIN
     Indication: INFECTION
     Dosage: INTRAVITREAL

REACTIONS (1)
  - Corneal opacity [Unknown]
